FAERS Safety Report 7223241-7 (Version None)
Quarter: 2011Q1

REPORT INFORMATION
  Report Type: 
  Country: None (occurrence: None)
  Receive Date: 20110112
  Receipt Date: 20100329
  Transmission Date: 20110831
  Serious: No
  Sender: FDA-Public Use
  Company Number: US-ALLERGAN-1004093US

PATIENT
  Sex: Female

DRUGS (3)
  1. RESTASIS [Suspect]
     Indication: DRY EYE
     Dosage: UNK
     Route: 047
  2. SYNTHROID [Concomitant]
     Indication: HYPOTHYROIDISM
  3. ALPHAGANA? P [Concomitant]
     Indication: GLAUCOMA

REACTIONS (1)
  - VISION BLURRED [None]
